FAERS Safety Report 6211167-7 (Version None)
Quarter: 2009Q2

REPORT INFORMATION
  Report Type: 
  Country: None (occurrence: None)
  Receive Date: 20090602
  Receipt Date: 20090528
  Transmission Date: 20091009
  Serious: Yes (Hospitalization)
  Sender: FDA-Public Use
  Company Number: GB-ROCHE-635396

PATIENT
  Age: 63 Year
  Sex: Male
  Weight: 90 kg

DRUGS (2)
  1. NAPROXEN SODIUM [Suspect]
     Route: 048
     Dates: start: 20090209, end: 20090508
  2. PARACETAMOL [Concomitant]

REACTIONS (4)
  - BLOOD BLISTER [None]
  - EPISTAXIS [None]
  - PETECHIAE [None]
  - THROMBOCYTOPENIC PURPURA [None]
